FAERS Safety Report 15022834 (Version 1)
Quarter: 2018Q2

REPORT INFORMATION
  Report Type: Spontaneous
  Country: CA (occurrence: CA)
  Receive Date: 20180618
  Receipt Date: 20180618
  Transmission Date: 20180711
  Serious: Yes (Other)
  Sender: FDA-Public Use
  Company Number: CA-CELLTRION INC.-2018CA020672

PATIENT

DRUGS (6)
  1. INFLECTRA [Suspect]
     Active Substance: INFLIXIMAB-DYYB
     Dosage: 5 MG/KG; WEEKS 0,2,6 AND THEN Q(EVERY) 8 WEEKS
     Route: 042
     Dates: start: 20180509
  2. PURINETHOL [Concomitant]
     Active Substance: MERCAPTOPURINE
     Dosage: UNK
     Dates: start: 201803
  3. CITALOPRAM [Concomitant]
     Active Substance: CITALOPRAM HYDROBROMIDE
     Dosage: UNK
  4. FREYA [Concomitant]
     Dosage: UNK
  5. INFLECTRA [Suspect]
     Active Substance: INFLIXIMAB-DYYB
     Indication: CROHN^S DISEASE
     Dosage: 5 MG/KG; WEEKS 0,2,6 AND THEN Q(EVERY) 8 WEEKS
     Route: 042
     Dates: start: 20180424
  6. PREDNISONE. [Concomitant]
     Active Substance: PREDNISONE
     Dosage: UNK
     Dates: end: 20180524

REACTIONS (7)
  - Condition aggravated [Not Recovered/Not Resolved]
  - Myalgia [Not Recovered/Not Resolved]
  - Arthralgia [Not Recovered/Not Resolved]
  - Mucous stools [Not Recovered/Not Resolved]
  - Haematochezia [Not Recovered/Not Resolved]
  - Rectal haemorrhage [Unknown]
  - Condition aggravated [Unknown]

NARRATIVE: CASE EVENT DATE: 201805
